FAERS Safety Report 17319431 (Version 1)
Quarter: 2020Q1

REPORT INFORMATION
  Report Type: Spontaneous
  Country: US (occurrence: US)
  Receive Date: 20200124
  Receipt Date: 20200124
  Transmission Date: 20200409
  Serious: Yes (Death)
  Sender: FDA-Public Use
  Company Number: US-JNJFOC-20200134649

PATIENT
  Age: 85 Year
  Sex: Female

DRUGS (2)
  1. PARACETAMOL [Suspect]
     Active Substance: ACETAMINOPHEN
     Indication: SUICIDE ATTEMPT
  2. CARBON MONOXIDE [Suspect]
     Active Substance: CARBON MONOXIDE
     Indication: SUICIDE ATTEMPT

REACTIONS (1)
  - Toxicity to various agents [Fatal]
